FAERS Safety Report 7469198-5 (Version None)
Quarter: 2011Q2

REPORT INFORMATION
  Report Type: 
  Country: None (occurrence: None)
  Receive Date: 20110510
  Receipt Date: 20110428
  Transmission Date: 20111010
  Serious: Yes (Other)
  Sender: FDA-Public Use
  Company Number: CA-BAYER-2011-024189

PATIENT
  Age: 27 Year
  Sex: Female
  Weight: 54.422 kg

DRUGS (1)
  1. YAZ [Suspect]
     Indication: CONTRACEPTION
     Dosage: 1 DF, QD
     Route: 048

REACTIONS (6)
  - INFLUENZA [None]
  - HEADACHE [None]
  - AMENORRHOEA [None]
  - DYSMENORRHOEA [None]
  - ABDOMINAL PAIN [None]
  - NAUSEA [None]
